FAERS Safety Report 19918872 (Version 1)
Quarter: 2021Q4

REPORT INFORMATION
  Report Type: Spontaneous
  Country: US (occurrence: US)
  Receive Date: 20211005
  Receipt Date: 20211005
  Transmission Date: 20220303
  Serious: Yes (Hospitalization, Other)
  Sender: FDA-Public Use
  Company Number: US-JNJFOC-20210960157

PATIENT
  Age: 67 Year
  Sex: Female
  Weight: 68.1 kg

DRUGS (1)
  1. STELARA [Suspect]
     Active Substance: USTEKINUMAB
     Indication: Crohn^s disease
     Route: 058

REACTIONS (3)
  - Crohn^s disease [Unknown]
  - Spinal fracture [Unknown]
  - Dehydration [Unknown]

NARRATIVE: CASE EVENT DATE: 20210801
